FAERS Safety Report 9962664 (Version 2)
Quarter: 2014Q1

REPORT INFORMATION
  Report Type: Report from Study
  Country: US (occurrence: US)
  Receive Date: 20140305
  Receipt Date: 20140305
  Transmission Date: 20141002
  Serious: Yes (Hospitalization, Other)
  Sender: FDA-Public Use
  Company Number: US-ABBVIE-13P-163-1097083-00

PATIENT
  Age: 39 Year
  Sex: Female

DRUGS (10)
  1. HUMIRA [Suspect]
     Indication: CROHN^S DISEASE
     Dosage: LOADING DOSE
     Dates: start: 20130314, end: 20130314
  2. HUMIRA [Suspect]
     Dates: start: 20130314, end: 201307
  3. HUMIRA [Suspect]
     Dates: start: 20130705
  4. PROTONIX [Concomitant]
     Indication: GASTROOESOPHAGEAL REFLUX DISEASE
  5. AZATHIOPRINE [Concomitant]
     Indication: IMMUNOSUPPRESSANT DRUG THERAPY
     Dosage: 3.5 - 50 MG TABS DAILY
  6. AZATHIOPRINE [Concomitant]
     Indication: CROHN^S DISEASE
  7. ESTRADIOL [Concomitant]
     Indication: HORMONE REPLACEMENT THERAPY
  8. ESTRADIOL [Concomitant]
     Indication: POSTMENOPAUSE
  9. LEVOTHYROXINE [Concomitant]
     Indication: HYPOTHYROIDISM
  10. PROGESTERONE [Concomitant]
     Indication: HORMONE REPLACEMENT THERAPY

REACTIONS (7)
  - Crohn^s disease [Recovered/Resolved]
  - Pyrexia [Unknown]
  - Chills [Unknown]
  - Urticaria [Unknown]
  - Psoriasis [Unknown]
  - Hypersensitivity [Unknown]
  - Haemorrhoids [Unknown]
